FAERS Safety Report 8998409 (Version 1)
Quarter: 2013Q1

REPORT INFORMATION
  Report Type: Report from Study
  Country: IT (occurrence: IT)
  Receive Date: 20130103
  Receipt Date: 20130103
  Transmission Date: 20140127
  Serious: Yes (Hospitalization)
  Sender: FDA-Public Use
  Company Number: IT-BAXTER-2012BAX028270

PATIENT
  Age: 12 Year
  Sex: Male
  Weight: 58.4 kg

DRUGS (7)
  1. HOLOXAN [Suspect]
     Indication: RHABDOMYOSARCOMA
     Route: 042
     Dates: start: 20111102
  2. HOLOXAN [Suspect]
     Route: 042
     Dates: start: 20111219
  3. VINCRISTINE [Suspect]
     Indication: RHABDOMYOSARCOMA
     Route: 042
     Dates: start: 20111102
  4. ACTINOMYCIN D [Suspect]
     Indication: RHABDOMYOSARCOMA
     Route: 042
     Dates: start: 20111102, end: 20111102
  5. DOXORUBICIN [Suspect]
     Indication: RHABDOMYOSARCOMA
     Route: 042
     Dates: start: 20111102
  6. DOXORUBICIN [Suspect]
     Route: 042
     Dates: start: 20111219
  7. MESNA [Suspect]
     Indication: RHABDOMYOSARCOMA
     Route: 042
     Dates: start: 20111219

REACTIONS (3)
  - Febrile neutropenia [Recovered/Resolved]
  - Febrile neutropenia [Recovered/Resolved]
  - Device malfunction [Recovered/Resolved]
